FAERS Safety Report 14544523 (Version 5)
Quarter: 2019Q2

REPORT INFORMATION
  Report Type: Spontaneous
  Country: JP (occurrence: JP)
  Receive Date: 20180217
  Receipt Date: 20190416
  Transmission Date: 20190711
  Serious: Yes (Hospitalization, Other)
  Sender: FDA-Public Use
  Company Number: JP-AMGEN-JPNSP2018022500

PATIENT
  Age: 52 Year
  Sex: Female
  Weight: 83 kg

DRUGS (27)
  1. SYMPROIC [Concomitant]
     Active Substance: NALDEMEDINE
     Indication: BREAST CANCER
     Dosage: 0.2 MILLIGRAM, QD
     Route: 048
  2. CONSTAN [ALPRAZOLAM] [Concomitant]
     Active Substance: ALPRAZOLAM
     Dosage: 0.4 MILLIGRAM, QD
     Route: 048
  3. AKINETON [Concomitant]
     Active Substance: BIPERIDEN HYDROCHLORIDE
     Indication: DEPRESSION
     Dosage: 1 MILLIGRAM, QD
     Route: 048
  4. COCARL [Concomitant]
     Active Substance: ACETAMINOPHEN
     Indication: METASTASES TO BONE
  5. SODIUM PICOSULFATE [Concomitant]
     Active Substance: SODIUM PICOSULFATE
     Dosage: 10 MILLILITER, AS NECESSARY
     Route: 048
  6. OXYCONTIN [Concomitant]
     Active Substance: OXYCODONE HYDROCHLORIDE
     Indication: BREAST CANCER
     Dosage: 120 MILLIGRAM, BID
     Route: 048
  7. SYMPROIC [Concomitant]
     Active Substance: NALDEMEDINE
     Indication: METASTASES TO BONE
  8. VOLTAREN [Concomitant]
     Active Substance: DICLOFENAC SODIUM
     Indication: METASTASES TO BONE
  9. MEQUITAZINE [Concomitant]
     Active Substance: MEQUITAZINE
     Indication: DEPRESSION
     Dosage: 3 MILLIGRAM, BID
     Route: 048
  10. OXYCONTIN [Concomitant]
     Active Substance: OXYCODONE HYDROCHLORIDE
     Indication: METASTASES TO BONE
  11. RABEPRAZOLE [Concomitant]
     Active Substance: RABEPRAZOLE
     Dosage: 10 MILLIGRAM, QD
     Route: 048
  12. TRAVELMIN [Concomitant]
     Indication: METASTASES TO BONE
  13. CRESTOR [Concomitant]
     Active Substance: ROSUVASTATIN CALCIUM
     Dosage: 2.5 MILLIGRAM, QD
     Route: 048
  14. OXINORM [Concomitant]
     Indication: BREAST CANCER
     Dosage: 40 MILLIGRAM, QID
     Route: 048
  15. MAGNESIUM OXIDE. [Concomitant]
     Active Substance: MAGNESIUM OXIDE
     Dosage: 660 MILLIGRAM, TID
     Route: 048
  16. VOLTAREN [Concomitant]
     Active Substance: DICLOFENAC SODIUM
     Indication: BREAST CANCER
     Dosage: 25 MILLIGRAM, TID
     Route: 048
  17. OLOPATADINE. [Concomitant]
     Active Substance: OLOPATADINE
     Dosage: 10 MILLIGRAM, BID
     Route: 048
  18. OXINORM [Concomitant]
     Indication: METASTASES TO BONE
  19. HALCION [Concomitant]
     Active Substance: TRIAZOLAM
     Dosage: 0.5 MILLIGRAM, QD
     Route: 048
  20. SERENACE [Concomitant]
     Active Substance: HALOPERIDOL
     Indication: DEPRESSION
     Dosage: 1.5 MILLIGRAM, QD
     Route: 048
  21. COCARL [Concomitant]
     Active Substance: ACETAMINOPHEN
     Indication: BREAST CANCER
     Dosage: 600 MILLIGRAM, TID
     Route: 048
  22. LYRICA [Concomitant]
     Active Substance: PREGABALIN
     Indication: METASTASES TO BONE
     Dosage: 50 MILLIGRAM, BID
     Route: 048
  23. RANMARK [Suspect]
     Active Substance: DENOSUMAB
     Indication: METASTASES TO BONE
     Dosage: 120 MILLIGRAM, Q4WK
     Route: 058
     Dates: start: 20131129, end: 201712
  24. FLUNITRAZEPAM [Concomitant]
     Active Substance: FLUNITRAZEPAM
     Indication: DEPRESSION
     Dosage: 2 MILLIGRAM, QD
     Route: 048
  25. TRAVELMIN [Concomitant]
     Indication: BREAST CANCER
     Dosage: UNK, QD
     Route: 048
  26. BENZBROMARONE [Concomitant]
     Active Substance: BENZBROMARONE
     Dosage: 25 MILLIGRAM, QD
     Route: 048
  27. NOVAMIN [Concomitant]
     Dosage: 5 MILLIGRAM, QD
     Route: 048

REACTIONS (3)
  - Lumbar spinal stenosis [Unknown]
  - Fall [Unknown]
  - Atypical femur fracture [Recovered/Resolved]

NARRATIVE: CASE EVENT DATE: 201712
